FAERS Safety Report 9862119 (Version 1)
Quarter: 2014Q1

REPORT INFORMATION
  Report Type: Report from Study
  Country: US (occurrence: US)
  Receive Date: 20140203
  Receipt Date: 20140203
  Transmission Date: 20141002
  Serious: Yes (Other)
  Sender: FDA-Public Use
  Company Number: US-ASTELLAS-2014US000948

PATIENT
  Age: 73 Year
  Sex: Female

DRUGS (16)
  1. ERLOTINIB TABLET [Suspect]
     Indication: MALIGNANT NEOPLASM OF PLEURA
     Dosage: 25 MG, ONCE IN 3 DAYS
     Route: 048
     Dates: start: 20131229
  2. ERLOTINIB TABLET [Suspect]
     Dosage: 150 MG, UID/QD
     Route: 048
     Dates: start: 20121130
  3. ERLOTINIB TABLET [Suspect]
     Dosage: 150 MG, UID/QD
     Route: 048
     Dates: start: 201212, end: 20121228
  4. ERLOTINIB TABLET [Suspect]
     Dosage: 150 MG, UID/QD
     Route: 048
     Dates: end: 20131231
  5. ANTINEOPLASTIC AGENTS [Suspect]
     Indication: PRODUCT USED FOR UNKNOWN INDICATION
     Dosage: UNK
     Route: 065
     Dates: end: 201311
  6. UNSPECIFIED EYE DROPS [Suspect]
     Indication: EYE INFLAMMATION
     Dosage: UNK
     Route: 047
  7. DICLOFENAC [Concomitant]
     Indication: ARTHRITIS
     Dosage: UNK
     Route: 048
  8. HYDROCHLOROTHIAZIDE [Concomitant]
     Indication: SWELLING
     Dosage: 25 MG, UID/QD
     Route: 048
  9. HYDROCHLOROTHIAZIDE [Concomitant]
     Indication: BLOOD PRESSURE
  10. FOLIC ACID [Concomitant]
     Indication: PRODUCT USED FOR UNKNOWN INDICATION
     Dosage: 1 MG, UID/QD
     Route: 065
  11. DOCUSATE SODIUM [Concomitant]
     Dosage: 250 MG, BID
     Route: 048
  12. VICODIN [Concomitant]
     Indication: ARTHRALGIA
     Dosage: 1 DF, QHS
     Route: 048
  13. PANTOPRAZOLE [Concomitant]
     Indication: ABDOMINAL PAIN UPPER
     Dosage: 40 MG, UID/QD
     Route: 048
  14. BENICAR [Concomitant]
     Indication: BLOOD PRESSURE
     Dosage: 20 MG, UID/QD
     Route: 065
  15. ALLOPURINOL [Concomitant]
     Indication: ARTHRITIS
     Dosage: 100 MG, UID/QD
     Route: 065
  16. ALEVE [Concomitant]
     Indication: ARTHRITIS
     Dosage: 1 DF, UID/QD
     Route: 065

REACTIONS (34)
  - Glaucoma [Unknown]
  - Blood glucose increased [Unknown]
  - Pulmonary oedema [Recovering/Resolving]
  - Visual acuity reduced [Not Recovered/Not Resolved]
  - Eye infection [Recovered/Resolved]
  - Rash generalised [Unknown]
  - Vision blurred [Unknown]
  - Vision blurred [Unknown]
  - Neuropathy peripheral [Not Recovered/Not Resolved]
  - Sensory loss [Not Recovered/Not Resolved]
  - Nail discolouration [Recovering/Resolving]
  - Tongue discolouration [Recovering/Resolving]
  - Oral pain [Not Recovered/Not Resolved]
  - Local swelling [Not Recovered/Not Resolved]
  - Dark circles under eyes [Unknown]
  - Insomnia [Not Recovered/Not Resolved]
  - Local swelling [Unknown]
  - Abdominal distension [Unknown]
  - Constipation [Unknown]
  - Increased upper airway secretion [Unknown]
  - Wheezing [Not Recovered/Not Resolved]
  - Decreased appetite [Unknown]
  - Stomatitis [Recovered/Resolved]
  - Skin discolouration [Unknown]
  - Skin discolouration [Recovering/Resolving]
  - Eye irritation [Unknown]
  - Dyspnoea [Not Recovered/Not Resolved]
  - Rash [Not Recovered/Not Resolved]
  - Asthenia [Unknown]
  - Dry skin [Unknown]
  - Weight decreased [Unknown]
  - Dyspnoea exertional [Unknown]
  - Rash papular [Unknown]
  - Cough [Unknown]
